FAERS Safety Report 4466938-4 (Version None)
Quarter: 2004Q4

REPORT INFORMATION
  Report Type: 
  Country: None (occurrence: None)
  Receive Date: 20041001
  Receipt Date: 20040923
  Transmission Date: 20050328
  Serious: Yes (Other)
  Sender: FDA-Public Use
  Company Number: HQWYE251324SEP04

PATIENT
  Age: 3 Year
  Sex: Male

DRUGS (1)
  1. PHENERGAN [Suspect]
     Dosage: RECTAL
     Route: 054
     Dates: start: 19810101, end: 19810101

REACTIONS (2)
  - CATATONIA [None]
  - MUSCLE SPASTICITY [None]
